FAERS Safety Report 8442928 (Version 4)
Quarter: 2013Q2

REPORT INFORMATION
  Report Type: Spontaneous
  Country: CA (occurrence: CA)
  Receive Date: 20120306
  Receipt Date: 20130612
  Transmission Date: 20140414
  Serious: Yes (Other)
  Sender: FDA-Public Use
  Company Number: CA-JNJFOC-20120213898

PATIENT
  Age: 52 Year
  Sex: Male
  Weight: 87 kg

DRUGS (4)
  1. REMICADE [Suspect]
     Indication: CROHN^S DISEASE
     Dosage: 7TH INFUSION
     Route: 042
     Dates: start: 20120101
  2. REMICADE [Suspect]
     Indication: CROHN^S DISEASE
     Route: 042
     Dates: start: 20110405
  3. REMERON [Concomitant]
  4. CHOLESTYRAMINE [Concomitant]

REACTIONS (2)
  - Skin cancer [Not Recovered/Not Resolved]
  - Staphylococcal infection [Recovered/Resolved]
